FAERS Safety Report 5707661-5 (Version None)
Quarter: 2008Q2

REPORT INFORMATION
  Report Type: 
  Country: None (occurrence: None)
  Receive Date: 20080415
  Receipt Date: 20080408
  Transmission Date: 20081010
  Serious: Yes (Hospitalization)
  Sender: FDA-Public Use
  Company Number: 2008008733

PATIENT
  Age: 57 Year
  Sex: Male
  Weight: 108.4 kg

DRUGS (3)
  1. ROGAINE [Suspect]
     Indication: ALOPECIA
     Dosage: TOPICAL
     Route: 061
     Dates: start: 20071201
  2. METFORMIN HCL [Concomitant]
  3. PREDNISONE TAB [Concomitant]

REACTIONS (2)
  - INFLUENZA [None]
  - PULMONARY EMBOLISM [None]
